FAERS Safety Report 17620512 (Version 3)
Quarter: 2020Q4

REPORT INFORMATION
  Report Type: Report from Study
  Country: US (occurrence: US)
  Receive Date: 20200403
  Receipt Date: 20201009
  Transmission Date: 20210113
  Serious: Yes (Other)
  Sender: FDA-Public Use
  Company Number: US-BAYER-2020-054865

PATIENT
  Sex: Female

DRUGS (14)
  1. HYDROCODONE [Concomitant]
     Active Substance: HYDROCODONE
     Indication: PAIN
     Dosage: UNK, PRN
     Route: 048
  2. VITAMIN B COMPLEX [Concomitant]
     Active Substance: CYANOCOBALAMIN\DEXPANTHENOL\NIACINAMIDE\PYRIDOXINE HYDROCHLORIDE\RIBOFLAVIN 5^-PHOSPHATE SODIUM\THIAMINE HYDROCHLORIDE\VITAMIN B COMPLEX
  3. TOPAMAX [Concomitant]
     Active Substance: TOPIRAMATE
     Indication: HEADACHE
     Dosage: 50 MG, BID
     Route: 048
  4. PANTOPRAZOLE [Concomitant]
     Active Substance: PANTOPRAZOLE
     Indication: ANTACID THERAPY
     Dosage: 40 MG, QD
     Route: 048
  5. LORATADINE (+) PSEUDOEPHEDRINE SULFATE [Suspect]
     Active Substance: LORATADINE\PSEUDOEPHEDRINE SULFATE
     Indication: PAIN
     Dosage: UNK
     Dates: start: 202003, end: 202003
  6. PEMBROLIZUMAB. [Suspect]
     Active Substance: PEMBROLIZUMAB
     Indication: OESOPHAGEAL CARCINOMA
     Dosage: UNK UNK, Q3WK
     Route: 042
     Dates: start: 20180710
  7. TOPAMAX [Concomitant]
     Active Substance: TOPIRAMATE
     Indication: HEADACHE
     Dosage: 15 MG, BID
  8. BIOTIN [Concomitant]
     Active Substance: BIOTIN
  9. BACLOFEN. [Concomitant]
     Active Substance: BACLOFEN
     Indication: MULTIPLE SCLEROSIS
     Dosage: 20 MG, UNK
     Route: 048
  10. LEVOTHYROXINE SODIUM. [Concomitant]
     Active Substance: LEVOTHYROXINE SODIUM
     Indication: THYROID DISORDER
     Dosage: 88 ?G, QD
     Route: 048
  11. RETINOL [Concomitant]
     Active Substance: RETINOL
  12. CHOLECALCIFEROL [Concomitant]
     Active Substance: CHOLECALCIFEROL
  13. PEMBROLIZUMAB. [Suspect]
     Active Substance: PEMBROLIZUMAB
     Indication: OESOPHAGEAL CARCINOMA
     Dosage: 200 MG, Q3WK
     Route: 042
     Dates: start: 20190710
  14. CYANOCOBALAMIN. [Concomitant]
     Active Substance: CYANOCOBALAMIN

REACTIONS (16)
  - Throat irritation [Unknown]
  - Thyroid disorder [Unknown]
  - Pain [Unknown]
  - Polyarthritis [Unknown]
  - Therapeutic product effect decreased [Unknown]
  - Myalgia [Not Recovered/Not Resolved]
  - Rheumatoid arthritis [Unknown]
  - Viral infection [Unknown]
  - Feeling abnormal [Unknown]
  - Bone pain [Unknown]
  - Malignant neoplasm progression [Unknown]
  - Inappropriate schedule of product administration [Unknown]
  - Palpitations [Unknown]
  - Neoplasm malignant [Unknown]
  - Cough [Recovered/Resolved]
  - Insomnia [Unknown]

NARRATIVE: CASE EVENT DATE: 2020
